FAERS Safety Report 15497989 (Version 1)
Quarter: 2018Q4

REPORT INFORMATION
  Report Type: Spontaneous
  Country: US (occurrence: US)
  Receive Date: 20181015
  Receipt Date: 20181015
  Transmission Date: 20190205
  Serious: No
  Sender: FDA-Public Use
  Company Number: US-EMD SERONO-232199K05USA

PATIENT
  Age: 59 Year
  Sex: Female

DRUGS (2)
  1. ARIMIDEX [Concomitant]
     Active Substance: ANASTROZOLE
     Indication: PRODUCT USED FOR UNKNOWN INDICATION
  2. REBIF [Suspect]
     Active Substance: INTERFERON BETA-1A
     Indication: MULTIPLE SCLEROSIS
     Route: 058
     Dates: start: 20031212

REACTIONS (14)
  - Blood cholesterol increased [Unknown]
  - Dizziness [Unknown]
  - Heart rate irregular [Unknown]
  - Sinusitis [Unknown]
  - Diastasis recti abdominis [Unknown]
  - Chromatopsia [Unknown]
  - Atrial fibrillation [Unknown]
  - Vision blurred [Unknown]
  - Heart rate increased [Unknown]
  - Ankylosing spondylitis [Unknown]
  - Blood phosphorus decreased [Unknown]
  - Blood calcium increased [Unknown]
  - Visual impairment [Unknown]
  - Abdominal distension [Unknown]

NARRATIVE: CASE EVENT DATE: 200503
